FAERS Safety Report 9385958 (Version 1)
Quarter: 2013Q3

REPORT INFORMATION
  Report Type: Report from Study
  Country: US (occurrence: US)
  Receive Date: 20130705
  Receipt Date: 20130705
  Transmission Date: 20140515
  Serious: Yes (Hospitalization)
  Sender: FDA-Public Use
  Company Number: US-ABBOTT-13P-163-1112575-00

PATIENT
  Sex: Female

DRUGS (3)
  1. HUMIRA [Suspect]
     Indication: RHEUMATOID ARTHRITIS
     Route: 058
     Dates: start: 201210, end: 201304
  2. HUMIRA [Suspect]
     Dates: start: 201305
  3. ENBREL [Concomitant]
     Dates: start: 201304, end: 201304

REACTIONS (8)
  - Wheezing [Unknown]
  - Hypertension [Unknown]
  - Dyspnoea [Unknown]
  - Injection site haemorrhage [Recovered/Resolved]
  - Injection site swelling [Recovered/Resolved]
  - Injection site pruritus [Recovered/Resolved]
  - Injection site erythema [Recovered/Resolved]
  - Generalised oedema [Not Recovered/Not Resolved]
